FAERS Safety Report 17575794 (Version 2)
Quarter: 2020Q2

REPORT INFORMATION
  Report Type: Spontaneous
  Country: RU (occurrence: RU)
  Receive Date: 20200324
  Receipt Date: 20200406
  Transmission Date: 20200713
  Serious: Yes (Hospitalization)
  Sender: FDA-Public Use
  Company Number: RU-BAYER-2020-046979

PATIENT
  Age: 45 Year
  Sex: Female
  Weight: 60 kg

DRUGS (1)
  1. QLAIRA [Suspect]
     Active Substance: DIENOGEST\ESTRADIOL VALERATE
     Indication: UTERINE HAEMORRHAGE
     Dosage: UNK
     Route: 048
     Dates: start: 202001

REACTIONS (2)
  - Endometritis [Recovered/Resolved]
  - Metrorrhagia [Recovered/Resolved]

NARRATIVE: CASE EVENT DATE: 2020
